FAERS Safety Report 7599469-3 (Version None)
Quarter: 2011Q3

REPORT INFORMATION
  Report Type: 
  Country: None (occurrence: None)
  Receive Date: 20110711
  Receipt Date: 20110517
  Transmission Date: 20111222
  Serious: No
  Sender: FDA-Public Use
  Company Number: US-BAYER-2011-042942

PATIENT
  Sex: Female

DRUGS (1)
  1. YASMIN [Suspect]
     Dosage: UNK
     Dates: start: 20080101

REACTIONS (3)
  - BLADDER DISORDER [None]
  - CYSTITIS INTERSTITIAL [None]
  - NEPHROLITHIASIS [None]
